FAERS Safety Report 21246099 (Version 5)
Quarter: 2022Q4

REPORT INFORMATION
  Report Type: Report from Study
  Country: US (occurrence: US)
  Receive Date: 20220824
  Receipt Date: 20221223
  Transmission Date: 20230113
  Serious: No
  Sender: FDA-Public Use
  Company Number: US-NOVARTISTESTPH-NVSC2022US186760

PATIENT
  Sex: Female

DRUGS (1)
  1. COSENTYX [Suspect]
     Active Substance: SECUKINUMAB
     Indication: Psoriatic arthropathy
     Dosage: UNK UNK, QMO
     Route: 058

REACTIONS (10)
  - COVID-19 [Recovered/Resolved]
  - Oropharyngeal pain [Unknown]
  - Throat irritation [Unknown]
  - Skin disorder [Unknown]
  - Musculoskeletal stiffness [Unknown]
  - Cough [Recovering/Resolving]
  - Influenza [Recovering/Resolving]
  - Peripheral swelling [Unknown]
  - Rhinorrhoea [Recovering/Resolving]
  - Therapy partial responder [Unknown]
